FAERS Safety Report 24355241 (Version 1)
Quarter: 2024Q3

REPORT INFORMATION
  Report Type: Report from Study
  Country: US (occurrence: US)
  Receive Date: 20240924
  Receipt Date: 20240924
  Transmission Date: 20241016
  Serious: Yes (Other)
  Sender: ABBVIE
  Company Number: US-ABBVIE-5931523

PATIENT
  Age: 53 Year
  Sex: Female

DRUGS (1)
  1. RINVOQ [Suspect]
     Active Substance: UPADACITINIB
     Indication: Rheumatoid arthritis
     Route: 048
     Dates: start: 202312

REACTIONS (3)
  - Transient ischaemic attack [Unknown]
  - Carotid artery stenosis [Not Recovered/Not Resolved]
  - Intracranial pressure increased [Not Recovered/Not Resolved]

NARRATIVE: CASE EVENT DATE: 20240919
